FAERS Safety Report 8606140-5 (Version None)
Quarter: 2012Q3

REPORT INFORMATION
  Report Type: 
  Country: None (occurrence: None)
  Receive Date: 20120820
  Receipt Date: 19960716
  Transmission Date: 20120928
  Serious: Yes (Hospitalization)
  Sender: FDA-Public Use
  Company Number: US-ROCHE-1101282

PATIENT
  Sex: Male

DRUGS (5)
  1. HEPARIN [Concomitant]
  2. ACTIVASE [Suspect]
     Indication: ACUTE MYOCARDIAL INFARCTION
  3. LIDOCAINE [Concomitant]
     Route: 041
  4. LOPRESSOR [Concomitant]
     Route: 042
  5. NITROGLYCERINE DRIP [Concomitant]
     Route: 041

REACTIONS (2)
  - VENTRICULAR TACHYCARDIA [None]
  - CHEST PAIN [None]
